FAERS Safety Report 10664533 (Version 1)
Quarter: 2014Q4

REPORT INFORMATION
  Report Type: Spontaneous
  Country: US (occurrence: None)
  Receive Date: 20141218
  Receipt Date: 20141218
  Transmission Date: 20150529
  Serious: Yes (Hospitalization)
  Sender: FDA-Public Use
  Company Number: None

PATIENT
  Age: 59 Year
  Sex: Male

DRUGS (1)
  1. ENBREL [Suspect]
     Active Substance: ETANERCEPT
     Indication: PSORIASIS
     Dosage: 50MG, QW, SQ
     Route: 058
     Dates: start: 20141030

REACTIONS (4)
  - Diplopia [None]
  - Cerebrovascular accident [None]
  - Nervous system disorder [None]
  - Muscular weakness [None]

NARRATIVE: CASE EVENT DATE: 20141216
